FAERS Safety Report 8304594-5 (Version None)
Quarter: 2012Q2

REPORT INFORMATION
  Report Type: 
  Country: None (occurrence: None)
  Receive Date: 20120423
  Receipt Date: 20120416
  Transmission Date: 20120825
  Serious: Yes (Hospitalization)
  Sender: FDA-Public Use
  Company Number: US-BAYER-2012-026146

PATIENT
  Age: 39 Year
  Sex: Female

DRUGS (5)
  1. MULTI-VITAMIN [Concomitant]
  2. YASMIN [Suspect]
  3. IBUPROFEN (ADVIL) [Concomitant]
  4. ZOLOFT [Concomitant]
     Dosage: 50 MG, UNK
     Route: 048
  5. YAZ [Suspect]

REACTIONS (3)
  - PULMONARY EMBOLISM [None]
  - INJURY [None]
  - PAIN [None]
